FAERS Safety Report 8844804 (Version 1)
Quarter: 2012Q4

REPORT INFORMATION
  Report Type: Spontaneous
  Country: US (occurrence: None)
  Receive Date: 20120928
  Receipt Date: 20120928
  Transmission Date: 20130627
  Serious: Yes (Hospitalization)
  Sender: FDA-Public Use
  Company Number: RB-39761-2012

PATIENT
  Age: 49 Year
  Sex: Male

DRUGS (3)
  1. SUBOXONE [Suspect]
     Indication: DRUG DEPENDENCE
     Route: 060
     Dates: start: 201002, end: 20120423
  2. ETHANOL [Suspect]
     Indication: ALCOHOL ABUSE
     Dosage: Dosing details unknown oral
     Route: 048
     Dates: end: 20120428
  3. WELLBUTRIN [Suspect]
     Indication: DEPRESSION
     Dosage: Dosing details unknown Oral
     Route: 048
     Dates: end: 20120423

REACTIONS (4)
  - Drug withdrawal syndrome [None]
  - Insomnia [None]
  - Arthralgia [None]
  - Alcohol abuse [None]
